FAERS Safety Report 16472988 (Version 1)
Quarter: 2019Q2

REPORT INFORMATION
  Report Type: Spontaneous
  Country: GB (occurrence: GB)
  Receive Date: 20190625
  Receipt Date: 20190625
  Transmission Date: 20190711
  Serious: Yes (Death, Hospitalization, Other)
  Sender: FDA-Public Use
  Company Number: GB-SA-2019SA170970

PATIENT
  Age: 52 Year
  Sex: Female

DRUGS (2)
  1. CYTARABINE. [Suspect]
     Active Substance: CYTARABINE
     Indication: ACUTE MYELOID LEUKAEMIA
     Dosage: 1000 MG/M2, QD
  2. CLOFARABINE. [Suspect]
     Active Substance: CLOFARABINE
     Indication: ACUTE MYELOID LEUKAEMIA
     Dosage: 40 MG/M2, QD

REACTIONS (14)
  - Toxic erythema of chemotherapy [Unknown]
  - Rash [Unknown]
  - Toxic epidermal necrolysis [Fatal]
  - Blister [Fatal]
  - Capillary leak syndrome [Fatal]
  - Generalised oedema [Fatal]
  - Circulatory collapse [Fatal]
  - Multiple organ dysfunction syndrome [Fatal]
  - Off label use [Fatal]
  - Dermatitis exfoliative generalised [Fatal]
  - Skin exfoliation [Fatal]
  - Hypovolaemia [Fatal]
  - Skin necrosis [Fatal]
  - Hypotension [Fatal]
